FAERS Safety Report 7704237-5 (Version None)
Quarter: 2011Q3

REPORT INFORMATION
  Report Type: 
  Country: None (occurrence: None)
  Receive Date: 20110801
  Receipt Date: 20110525
  Transmission Date: 20111222
  Serious: Yes (Hospitalization)
  Sender: FDA-Public Use
  Company Number: AMAG201100132

PATIENT
  Age: 78 Year
  Sex: Female
  Weight: 46.7 kg

DRUGS (11)
  1. ADVAIR HFA [Concomitant]
  2. PLAVIX [Concomitant]
  3. OXYGEN [Concomitant]
  4. NORVASC [Concomitant]
  5. DIOVAN [Concomitant]
  6. LEVOTHYROXINE SODIUM [Concomitant]
  7. FERAHEME [Suspect]
     Indication: IRON DEFICIENCY ANAEMIA
     Dosage: 360 MG, SINGLE, INTRAVENOUS
     Route: 042
     Dates: start: 20110512, end: 20110512
  8. CRESTOR [Concomitant]
  9. ASPIRIN [Concomitant]
  10. ALBUTEROL SULFATE AUTOHALER [Concomitant]
  11. PROAIR (FLUTICASONE PROPIONATE) [Concomitant]

REACTIONS (2)
  - ASTHENIA [None]
  - DYSPNOEA [None]
